FAERS Safety Report 4349097-8 (Version None)
Quarter: 2004Q2

REPORT INFORMATION
  Report Type: 
  Country: None (occurrence: None)
  Receive Date: 20040428
  Receipt Date: 20040421
  Transmission Date: 20050107
  Serious: Yes (Hospitalization)
  Sender: FDA-Public Use
  Company Number: US-JNJFOC-20040405031

PATIENT
  Age: 24 Year
  Sex: Female

DRUGS (3)
  1. NORGESTIMATE AND ETHINYL ESTRADIOL [Suspect]
     Indication: CONTRACEPTION
     Route: 049
     Dates: start: 20040101, end: 20040410
  2. ORTHO TRI-CYCLEN [Suspect]
     Dates: start: 19980101, end: 20040101
  3. ORTHO TRI-CYCLEN [Suspect]
     Indication: CONTRACEPTION
     Dates: start: 19980101, end: 20040101

REACTIONS (2)
  - CHOLECYSTECTOMY [None]
  - COLITIS ISCHAEMIC [None]
